FAERS Safety Report 9185061 (Version 2)
Quarter: 2013Q3

REPORT INFORMATION
  Report Type: Report from Study
  Country: DE (occurrence: DE)
  Receive Date: 20121101
  Receipt Date: 20130906
  Transmission Date: 20140515
  Serious: Yes (Death, Life-Threatening, Hospitalization)
  Sender: FDA-Public Use
  Company Number: DE-ROCHE-1014403

PATIENT
  Age: 46 Year
  Sex: Female
  Weight: 100 kg

DRUGS (4)
  1. PEG-INTERFERON ALFA 2A [Suspect]
     Indication: CHRONIC HEPATITIS C
     Route: 058
     Dates: start: 20091202, end: 20100420
  2. RIBAVIRIN [Suspect]
     Indication: CHRONIC HEPATITIS C
     Route: 048
     Dates: start: 20091202, end: 20100420
  3. AMISULPRIDE [Concomitant]
     Route: 048
     Dates: start: 20090928, end: 20100914
  4. CARBAMAZEPIN [Concomitant]
     Route: 048
     Dates: start: 20090928

REACTIONS (2)
  - Death [Fatal]
  - Anaemia [Recovering/Resolving]
